FAERS Safety Report 11052120 (Version 1)
Quarter: 2015Q2

REPORT INFORMATION
  Report Type: Spontaneous
  Country: US (occurrence: US)
  Receive Date: 20150421
  Receipt Date: 20150421
  Transmission Date: 20150821
  Serious: Yes (Death)
  Sender: FDA-Public Use
  Company Number: US-CIPLA LTD.-2015US03210

PATIENT

DRUGS (6)
  1. BRENTUXIMAB VEDOTIN [Suspect]
     Active Substance: BRENTUXIMAB VEDOTIN
     Indication: HODGKIN^S DISEASE
     Dosage: 1.2 MG/KG ON DAYS 1, 8, AND 15 FOR TWO 28 DAY CYCLES
     Route: 065
  2. MESNA. [Suspect]
     Active Substance: MESNA
  3. CARBOPLATIN. [Suspect]
     Active Substance: CARBOPLATIN
     Indication: HODGKIN^S DISEASE
     Dosage: ONE DOSE, AUC 5
     Route: 065
  4. IFOSFAMIDE. [Suspect]
     Active Substance: IFOSFAMIDE
     Dosage: 5000 MG/M2, INFUSION OVER 24 H, DAYS 1 AND 2
  5. IFOSFAMIDE. [Suspect]
     Active Substance: IFOSFAMIDE
     Indication: HODGKIN^S DISEASE
     Dosage: 5000 MG/M2 TWO DOSES, INFUSION OVER 24 H, DAYS 1 AND 2
     Route: 065
  6. ETOPOSIDE. [Suspect]
     Active Substance: ETOPOSIDE
     Indication: HODGKIN^S DISEASE
     Dosage: THREE DOSES,200 MG/M2 EVERY 12 H, DAY 1

REACTIONS (2)
  - Progressive multifocal leukoencephalopathy [Fatal]
  - Leukopenia [Fatal]
